FAERS Safety Report 8888344 (Version 1)
Quarter: 2012Q4

REPORT INFORMATION
  Report Type: 
  Country: US (occurrence: US)
  Receive Date: 20121106
  Receipt Date: 20121106
  Transmission Date: 20130627
  Serious: No
  Sender: FDA-Public Use
  Company Number: US-PFIZER INC-2012274935

PATIENT
  Sex: Male

DRUGS (1)
  1. TIKOSYN [Suspect]
     Indication: ATRIAL FIBRILLATION
     Dosage: 2 capsules of 250 mcg in a day

REACTIONS (1)
  - Flushing [Unknown]
